FAERS Safety Report 12438105 (Version 1)
Quarter: 2016Q2

REPORT INFORMATION
  Report Type: Report from Study
  Country: US (occurrence: US)
  Receive Date: 20160606
  Receipt Date: 20160606
  Transmission Date: 20160815
  Serious: Yes (Hospitalization, Other)
  Sender: FDA-Public Use
  Company Number: US-ELI_LILLY_AND_COMPANY-US201302007441

PATIENT
  Age: 78 Year
  Sex: Female
  Weight: 62.59 kg

DRUGS (14)
  1. FORTEO [Suspect]
     Active Substance: TERIPARATIDE
     Indication: OSTEOPENIA
     Dosage: 20 UG, QD
     Route: 058
  2. FORTEO [Suspect]
     Active Substance: TERIPARATIDE
     Dosage: UNK, QD
     Route: 058
  3. ONDANSETRON [Concomitant]
     Active Substance: ONDANSETRON
     Indication: PRODUCT USED FOR UNKNOWN INDICATION
     Dosage: 4 MG, UNKNOWN
     Route: 065
  4. ERGOCALCIFEROL. [Concomitant]
     Active Substance: ERGOCALCIFEROL
     Dosage: 4000 U, UNKNOWN
     Route: 065
  5. FORTEO [Suspect]
     Active Substance: TERIPARATIDE
     Indication: COMPRESSION FRACTURE
     Dosage: 20 UG, QD
     Route: 058
  6. FORTEO [Suspect]
     Active Substance: TERIPARATIDE
     Dosage: UNK, QD
     Route: 058
     Dates: end: 20140819
  7. POTASSIUM [Concomitant]
     Active Substance: POTASSIUM
     Indication: PRODUCT USED FOR UNKNOWN INDICATION
     Route: 065
  8. PROMETHAZINE [Concomitant]
     Active Substance: PROMETHAZINE\PROMETHAZINE HYDROCHLORIDE
     Indication: PRODUCT USED FOR UNKNOWN INDICATION
     Dosage: 25 MG, UNKNOWN
     Route: 065
  9. ERGOCALCIFEROL. [Concomitant]
     Active Substance: ERGOCALCIFEROL
     Indication: PRODUCT USED FOR UNKNOWN INDICATION
     Dosage: 3000 U, UNKNOWN
     Route: 065
  10. HYDROCHLOROTHIAZIDE. [Concomitant]
     Active Substance: HYDROCHLOROTHIAZIDE
     Indication: PRODUCT USED FOR UNKNOWN INDICATION
     Dosage: 25 MG, UNKNOWN
     Route: 065
  11. CALCIUM [Concomitant]
     Active Substance: CALCIUM
     Indication: PRODUCT USED FOR UNKNOWN INDICATION
     Dosage: UNK
     Route: 065
     Dates: end: 2013
  12. FORTEO [Suspect]
     Active Substance: TERIPARATIDE
     Dosage: UNK, QD
     Route: 058
  13. FORTEO [Suspect]
     Active Substance: TERIPARATIDE
     Indication: OSTEOPOROSIS
     Dosage: 20 UG, QD
     Route: 058
     Dates: start: 201209
  14. HYDROCHLOROTHIAZIDE. [Concomitant]
     Active Substance: HYDROCHLOROTHIAZIDE
     Dosage: 12.5 MG, UNKNOWN
     Route: 065
     Dates: start: 201507

REACTIONS (113)
  - Thinking abnormal [Unknown]
  - Immunoglobulins increased [Not Recovered/Not Resolved]
  - Red blood cell count decreased [Not Recovered/Not Resolved]
  - Pain in extremity [Unknown]
  - Aspartate aminotransferase increased [Unknown]
  - Anxiety [Unknown]
  - Immune system disorder [Unknown]
  - Lymphocyte count decreased [Not Recovered/Not Resolved]
  - Arteriosclerosis [Unknown]
  - Intraocular pressure increased [Recovered/Resolved]
  - Tooth fracture [Unknown]
  - Diarrhoea [Not Recovered/Not Resolved]
  - Diarrhoea [Not Recovered/Not Resolved]
  - Dizziness [Not Recovered/Not Resolved]
  - Muscular weakness [Not Recovered/Not Resolved]
  - Carotid artery disease [Not Recovered/Not Resolved]
  - Body height decreased [Not Recovered/Not Resolved]
  - Sleep disorder [Unknown]
  - Bruxism [Unknown]
  - Paraesthesia [Not Recovered/Not Resolved]
  - Eye pain [Not Recovered/Not Resolved]
  - Rheumatoid arthritis [Unknown]
  - Tooth loss [Unknown]
  - Fatigue [Not Recovered/Not Resolved]
  - Mobility decreased [Unknown]
  - Asthenopia [Unknown]
  - White blood cell count decreased [Unknown]
  - Gastroenteritis viral [Unknown]
  - Bone cancer [Not Recovered/Not Resolved]
  - Chronic obstructive pulmonary disease [Unknown]
  - Peripheral swelling [Unknown]
  - Anaemia [Unknown]
  - Blood sodium decreased [Unknown]
  - Blood chloride decreased [Unknown]
  - Mass [Not Recovered/Not Resolved]
  - Gingival recession [Unknown]
  - Intraocular pressure increased [Unknown]
  - Neutrophil count decreased [Unknown]
  - Mean cell haemoglobin concentration decreased [Unknown]
  - Dysphagia [Recovering/Resolving]
  - Tension [Unknown]
  - Migraine [Unknown]
  - Gait disturbance [Unknown]
  - Frustration tolerance decreased [Unknown]
  - Contusion [Not Recovered/Not Resolved]
  - General physical health deterioration [Unknown]
  - Asthenia [Unknown]
  - Immunoglobulins increased [Unknown]
  - Compression fracture [Unknown]
  - Heart rate increased [Unknown]
  - Hypotension [Unknown]
  - Stress [Unknown]
  - Calcium ionised decreased [Unknown]
  - Appetite disorder [Unknown]
  - Dehydration [Not Recovered/Not Resolved]
  - Oxygen saturation decreased [Unknown]
  - Arthropathy [Unknown]
  - Ocular hypertension [Unknown]
  - Hair texture abnormal [Unknown]
  - Feeling abnormal [Unknown]
  - Neck pain [Unknown]
  - Tooth fracture [Unknown]
  - Blood immunoglobulin A decreased [Not Recovered/Not Resolved]
  - Vomiting [Not Recovered/Not Resolved]
  - Vomiting [Not Recovered/Not Resolved]
  - Fall [Unknown]
  - Oxygen saturation decreased [Recovered/Resolved]
  - Haemoglobin increased [Unknown]
  - Adiponectin increased [Unknown]
  - Influenza [Unknown]
  - Pain in jaw [Unknown]
  - Pain [Unknown]
  - Visual impairment [Unknown]
  - Fatigue [Unknown]
  - Headache [Not Recovered/Not Resolved]
  - Pruritus [Unknown]
  - Nausea [Not Recovered/Not Resolved]
  - Malignant melanoma [Unknown]
  - Leukaemia [Unknown]
  - Malaise [Unknown]
  - Mean cell volume increased [Unknown]
  - Muscle disorder [Unknown]
  - Somnolence [Unknown]
  - Abnormal loss of weight [Unknown]
  - Dark circles under eyes [Unknown]
  - Osteopenia [Unknown]
  - Ocular hyperaemia [Unknown]
  - Blood pressure increased [Unknown]
  - Sluggishness [Unknown]
  - Blood immunoglobulin M decreased [Not Recovered/Not Resolved]
  - Skin discolouration [Unknown]
  - Arthralgia [Unknown]
  - Weight increased [Not Recovered/Not Resolved]
  - Mean cell haemoglobin increased [Unknown]
  - Memory impairment [Not Recovered/Not Resolved]
  - Neutrophil count decreased [Not Recovered/Not Resolved]
  - Visual impairment [Not Recovered/Not Resolved]
  - Protein total abnormal [Unknown]
  - Injection site bruising [Unknown]
  - Constipation [Not Recovered/Not Resolved]
  - Balance disorder [Recovering/Resolving]
  - Ovarian neoplasm [Unknown]
  - Hypergammaglobulinaemia benign monoclonal [Unknown]
  - Carbon dioxide increased [Unknown]
  - White blood cell count decreased [Not Recovered/Not Resolved]
  - Weight decreased [Unknown]
  - Large intestine polyp [Unknown]
  - Skin disorder [Not Recovered/Not Resolved]
  - Spinal disorder [Recovering/Resolving]
  - Eye pain [Unknown]
  - Asthenia [Not Recovered/Not Resolved]
  - Dizziness [Unknown]
  - Drug ineffective [Not Recovered/Not Resolved]

NARRATIVE: CASE EVENT DATE: 201209
